FAERS Safety Report 17550606 (Version 1)
Quarter: 2020Q1

REPORT INFORMATION
  Report Type: Spontaneous
  Country: FR (occurrence: FR)
  Receive Date: 20200317
  Receipt Date: 20200317
  Transmission Date: 20200409
  Serious: Yes (Death, Other)
  Sender: FDA-Public Use
  Company Number: NVSC2020FR072575

PATIENT
  Sex: Male
  Weight: 68 kg

DRUGS (1)
  1. LUTATHERA [Suspect]
     Active Substance: LUTETIUM OXODOTREOTIDE LU-177
     Indication: NEUROENDOCRINE TUMOUR
     Dosage: 740 MBQ
     Route: 042

REACTIONS (24)
  - Metastases to heart [Unknown]
  - Blood creatinine increased [Unknown]
  - Abdominal pain [Unknown]
  - Prothrombin time shortened [Unknown]
  - Hepatomegaly [Unknown]
  - Metabolic acidosis [Unknown]
  - Hypoalbuminaemia [Fatal]
  - Acute kidney injury [Fatal]
  - Hypovolaemia [Fatal]
  - Platelet count decreased [Unknown]
  - Blood bilirubin decreased [Unknown]
  - Pleural effusion [Fatal]
  - Pericardial effusion [Unknown]
  - Generalised oedema [Fatal]
  - Metastases to peritoneum [Unknown]
  - Metastases to liver [Unknown]
  - Glomerular filtration rate decreased [Unknown]
  - Aspartate aminotransferase increased [Unknown]
  - Blood bicarbonate decreased [Unknown]
  - Blood albumin decreased [Unknown]
  - Hepatic function abnormal [Unknown]
  - Acute hepatic failure [Fatal]
  - Hepatic necrosis [Fatal]
  - Alanine aminotransferase increased [Unknown]
